FAERS Safety Report 4284541-6 (Version None)
Quarter: 2004Q1

REPORT INFORMATION
  Report Type: 
  Country: None (occurrence: None)
  Receive Date: 20040130
  Receipt Date: 20040112
  Transmission Date: 20041129
  Serious: Yes (Death)
  Sender: FDA-Public Use
  Company Number: GBS040114265

PATIENT
  Age: 23 Year
  Sex: Male

DRUGS (3)
  1. OLANZAPINE [Suspect]
  2. VALPROATE SODIUM [Concomitant]
  3. EFFEXOR [Concomitant]

REACTIONS (1)
  - PULMONARY EMBOLISM [None]
